FAERS Safety Report 16580154 (Version 1)
Quarter: 2019Q3

REPORT INFORMATION
  Report Type: Spontaneous
  Country: FR (occurrence: FR)
  Receive Date: 20190716
  Receipt Date: 20190716
  Transmission Date: 20191004
  Serious: Yes (Hospitalization)
  Sender: FDA-Public Use
  Company Number: FR-TEVA-2019-FR-1077401

PATIENT
  Age: 57 Year
  Sex: Male
  Weight: 44 kg

DRUGS (8)
  1. METHYLPREDNISOLONE. [Concomitant]
     Active Substance: METHYLPREDNISOLONE
     Indication: PREMEDICATION
     Dosage: 80MG PER DAY
     Route: 042
     Dates: start: 20190326, end: 20190330
  2. EMEND [Concomitant]
     Active Substance: APREPITANT
     Indication: PREMEDICATION
     Route: 048
     Dates: start: 20190326, end: 20190326
  3. ONDANSETRON [Concomitant]
     Active Substance: ONDANSETRON
     Indication: PREMEDICATION
     Dosage: 4MG PER DAY
     Route: 042
     Dates: start: 20190326, end: 20190330
  4. PANTOPRAZOLE [Concomitant]
     Active Substance: PANTOPRAZOLE
     Indication: PRODUCT USED FOR UNKNOWN INDICATION
     Dosage: 20MG PER DAY
     Route: 048
     Dates: start: 20190327, end: 20190329
  5. FLUOROURACILE [Suspect]
     Active Substance: FLUOROURACIL
     Indication: TONSIL CANCER
     Route: 042
     Dates: start: 20190326, end: 20190330
  6. CISPLATINE MYLAN [Suspect]
     Active Substance: CISPLATIN
     Indication: TONSIL CANCER
     Dosage: 148MG
     Route: 042
     Dates: start: 20190326, end: 20190326
  7. ORAMORPH [Concomitant]
     Active Substance: MORPHINE SULFATE
     Indication: PAIN
     Route: 048
     Dates: start: 20190331, end: 20190412
  8. METOCLOPRAMIDE. [Concomitant]
     Active Substance: METOCLOPRAMIDE
     Indication: PREMEDICATION
     Dosage: 10MG PER DAY
     Route: 042
     Dates: start: 20190327, end: 20190328

REACTIONS (6)
  - Thrombocytopenia [Not Recovered/Not Resolved]
  - Dysphagia [Not Recovered/Not Resolved]
  - Acute kidney injury [Recovering/Resolving]
  - Mucosal inflammation [Not Recovered/Not Resolved]
  - Hypokalaemia [Recovered/Resolved]
  - Agranulocytosis [Recovered/Resolved]

NARRATIVE: CASE EVENT DATE: 20190331
